FAERS Safety Report 9279552 (Version 3)
Quarter: 2013Q2

REPORT INFORMATION
  Report Type: Spontaneous
  Country: US (occurrence: US)
  Receive Date: 20130509
  Receipt Date: 20130625
  Transmission Date: 20140414
  Serious: Yes (Other)
  Sender: FDA-Public Use
  Company Number: US-009507513-1305USA001791

PATIENT
  Age: 30 Year
  Sex: Female

DRUGS (3)
  1. SAPHRIS [Suspect]
     Indication: BIPOLAR I DISORDER
     Dosage: 10 MG TABLET RAPID DISSOLVE, BID
     Route: 060
     Dates: start: 201206
  2. CYMBALTA [Concomitant]
     Dosage: UNK
  3. LOMEXIN [Concomitant]
     Dosage: UNK

REACTIONS (1)
  - Tongue neoplasm malignant stage unspecified [Unknown]
